FAERS Safety Report 14918689 (Version 2)
Quarter: 2018Q2

REPORT INFORMATION
  Report Type: Spontaneous
  Country: US (occurrence: US)
  Receive Date: 20180521
  Receipt Date: 20180522
  Transmission Date: 20180711
  Serious: Yes (Other)
  Sender: FDA-Public Use
  Company Number: US-PFIZER INC-2018204793

PATIENT
  Age: 81 Year
  Sex: Male
  Weight: 86.62 kg

DRUGS (2)
  1. VANCOMYCIN HCL [Suspect]
     Active Substance: VANCOMYCIN HYDROCHLORIDE
     Indication: CLOSTRIDIUM DIFFICILE COLITIS
     Dosage: UNK
     Route: 048
  2. REMICADE [Concomitant]
     Active Substance: INFLIXIMAB
     Dosage: UNK (ONCE EVERY 8 WEEKS)

REACTIONS (3)
  - Disease recurrence [Unknown]
  - Infection [Unknown]
  - Clostridium difficile infection [Unknown]
